FAERS Safety Report 4703824-6 (Version None)
Quarter: 2005Q2

REPORT INFORMATION
  Report Type: 
  Country: None (occurrence: None)
  Receive Date: 20050630
  Receipt Date: 20050422
  Transmission Date: 20051028
  Serious: No
  Sender: FDA-Public Use
  Company Number: US-GLAXOSMITHKLINE-A0555363A

PATIENT
  Sex: Male

DRUGS (4)
  1. FLOVENT [Suspect]
     Indication: ASTHMA
     Dosage: 2PUFF TWICE PER DAY
     Route: 055
     Dates: start: 20050401
  2. SINGULAIR [Concomitant]
  3. FORADIL [Concomitant]
  4. ALBUTEROL [Concomitant]

REACTIONS (2)
  - COUGH [None]
  - DYSPNOEA [None]
